FAERS Safety Report 7042403-5 (Version None)
Quarter: 2010Q4

REPORT INFORMATION
  Report Type: 
  Country: None (occurrence: None)
  Receive Date: 20101013
  Receipt Date: 20091023
  Transmission Date: 20110411
  Serious: No
  Sender: FDA-Public Use
  Company Number: US-ASTRAZENECA-2009SE22331

PATIENT
  Age: 84 Year
  Sex: Female

DRUGS (5)
  1. SYMBICORT [Suspect]
     Indication: CHRONIC OBSTRUCTIVE PULMONARY DISEASE
     Dosage: BID
     Route: 055
  2. VENTOLIN [Concomitant]
     Dosage: ONE PUFF PER DAY
  3. ALBUTEROL [Concomitant]
     Route: 065
  4. IPRATROPIUM BROMIDE [Concomitant]
  5. MUCINEX [Concomitant]
     Indication: INCREASED UPPER AIRWAY SECRETION

REACTIONS (2)
  - DYSPNOEA [None]
  - INCREASED UPPER AIRWAY SECRETION [None]
